FAERS Safety Report 7886668-6 (Version None)
Quarter: 2011Q4

REPORT INFORMATION
  Report Type: 
  Country: None (occurrence: None)
  Receive Date: 20111102
  Receipt Date: 20110708
  Transmission Date: 20120403
  Serious: Yes (Hospitalization)
  Sender: FDA-Public Use
  Company Number: US-AMGEN-USASP2011034805

PATIENT
  Age: 59 Year
  Sex: Female

DRUGS (3)
  1. ENBREL [Suspect]
     Indication: LUNG DISORDER
     Dosage: 25 MG, 2 TIMES/WK
     Dates: start: 20030101
  2. ENBREL [Suspect]
     Indication: IDIOPATHIC PNEUMONIA SYNDROME
  3. ENBREL [Suspect]
     Indication: OBLITERATIVE BRONCHIOLITIS

REACTIONS (4)
  - PLATELET COUNT DECREASED [None]
  - LUNG INFECTION [None]
  - BLOOD COUNT ABNORMAL [None]
  - STAPHYLOCOCCAL INFECTION [None]
